FAERS Safety Report 12797423 (Version 1)
Quarter: 2016Q3

REPORT INFORMATION
  Report Type: Spontaneous
  Country: US (occurrence: US)
  Receive Date: 20160929
  Receipt Date: 20160929
  Transmission Date: 20161109
  Serious: Yes (Other)
  Sender: FDA-Public Use
  Company Number: None

PATIENT
  Age: 80 Year
  Sex: Male
  Weight: 82.1 kg

DRUGS (3)
  1. HEPARIN SAGENT PHARMACEUTICALS [Suspect]
     Active Substance: HEPARIN SODIUM
     Indication: VASCULAR GRAFT
     Dosage: OTHER ROUTE: EXTRA-CORPOREAL VEIN FLUSH?
     Dates: start: 20160919, end: 20160919
  2. HEPARIN SAGENT PHARMACEUTICALS [Suspect]
     Active Substance: HEPARIN SODIUM
     Indication: PROPHYLAXIS
     Dosage: OTHER ROUTE: EXTRA-CORPOREAL VEIN FLUSH?
     Dates: start: 20160919, end: 20160919
  3. HEPARIN SAGENT PHARMACEUTICALS [Suspect]
     Active Substance: HEPARIN SODIUM
     Indication: VENOUS OCCLUSION
     Dosage: OTHER ROUTE: EXTRA-CORPOREAL VEIN FLUSH?
     Dates: start: 20160919, end: 20160919

REACTIONS (2)
  - Venous thrombosis [None]
  - Product substitution issue [None]

NARRATIVE: CASE EVENT DATE: 20160919
